FAERS Safety Report 9221199 (Version 1)
Quarter: 2013Q2

REPORT INFORMATION
  Report Type: Spontaneous
  Country: FR (occurrence: FR)
  Receive Date: 20130410
  Receipt Date: 20130410
  Transmission Date: 20140414
  Serious: Yes (Other)
  Sender: FDA-Public Use
  Company Number: FR-AMGEN-FRASP2013024576

PATIENT
  Age: 43 Year
  Sex: Female

DRUGS (5)
  1. ENBREL [Suspect]
     Indication: ANKYLOSING SPONDYLITIS
     Dosage: 1 DF, SINGLE
     Route: 058
     Dates: start: 20120628, end: 20120628
  2. SKENAN [Concomitant]
     Dosage: 10MG, 2 DF, 1X/DAY
  3. ACTISKENAN [Concomitant]
     Dosage: 5MG, UP TO 4 DF DAILY ACCORDING TO PAIN
  4. APRANAX                            /00256202/ [Concomitant]
     Dosage: UNK
  5. BI-PROFENID [Concomitant]
     Dosage: UNK

REACTIONS (2)
  - Dyspnoea [Recovered/Resolved]
  - Anxiety [Unknown]
